FAERS Safety Report 16832764 (Version 1)
Quarter: 2019Q3

REPORT INFORMATION
  Report Type: Spontaneous
  Country: US (occurrence: US)
  Receive Date: 20190917
  Receipt Date: 20190917
  Transmission Date: 20191005
  Serious: No
  Sender: FDA-Public Use
  Company Number: None

PATIENT
  Age: 68 Year
  Sex: Female
  Weight: 68 kg

DRUGS (2)
  1. HEPARIN [Suspect]
     Active Substance: HEPARIN SODIUM
     Indication: PERCUTANEOUS CORONARY INTERVENTION
     Route: 042
     Dates: start: 20190905
  2. HEPARIN [Suspect]
     Active Substance: HEPARIN SODIUM
     Route: 042

REACTIONS (2)
  - Intentional product use issue [None]
  - Drug ineffective [None]

NARRATIVE: CASE EVENT DATE: 20190905
